FAERS Safety Report 22067215 (Version 1)
Quarter: 2023Q1

REPORT INFORMATION
  Report Type: Spontaneous
  Country: IT (occurrence: IT)
  Receive Date: 20230307
  Receipt Date: 20230307
  Transmission Date: 20230417
  Serious: Yes (Other)
  Sender: FDA-Public Use
  Company Number: IT-JNJFOC-20230301691

PATIENT
  Age: 60 Year
  Sex: Female

DRUGS (1)
  1. HALDOL [Suspect]
     Active Substance: HALOPERIDOL
     Indication: Product used for unknown indication
     Dosage: 2MG/ML ORAL DROPS, 30ML BOTTLE SOLUTION
     Route: 048

REACTIONS (2)
  - Intentional self-injury [Unknown]
  - Sopor [Unknown]
